FAERS Safety Report 6231937-9 (Version None)
Quarter: 2009Q2

REPORT INFORMATION
  Report Type: 
  Country: None (occurrence: None)
  Receive Date: 20090616
  Receipt Date: 20090423
  Transmission Date: 20091009
  Serious: Yes (Hospitalization)
  Sender: FDA-Public Use
  Company Number: TR-ELI_LILLY_AND_COMPANY-TR200906003278

PATIENT
  Age: 63 Year
  Sex: Male

DRUGS (2)
  1. HUMULIN 70/30 [Suspect]
     Indication: TYPE 2 DIABETES MELLITUS
     Dosage: 88 IU, DAILY (1/D)
     Route: 058
     Dates: start: 19920101
  2. HUMULIN 70/30 [Suspect]
     Dosage: UNK, UNK
     Dates: start: 20040401

REACTIONS (1)
  - VASCULAR GRAFT [None]
